FAERS Safety Report 13540807 (Version 1)
Quarter: 2017Q2

REPORT INFORMATION
  Report Type: Spontaneous
  Country: GB (occurrence: GB)
  Receive Date: 20170512
  Receipt Date: 20170512
  Transmission Date: 20170830
  Serious: Yes (Life-Threatening, Hospitalization)
  Sender: FDA-Public Use
  Company Number: GB-PFIZER INC-2017209556

PATIENT
  Age: 76 Year
  Sex: Female
  Weight: 65 kg

DRUGS (10)
  1. ALENDRONIC ACID [Concomitant]
     Active Substance: ALENDRONIC ACID
     Dosage: 70 MG, WEEKLY
  2. CARBOMER [Concomitant]
     Active Substance: CARBOMER
     Dosage: UNK
     Route: 050
  3. LANSOPRAZOLE. [Concomitant]
     Active Substance: LANSOPRAZOLE
     Dosage: 15 MG, 1X/DAY
  4. ROSUVASTATIN. [Concomitant]
     Active Substance: ROSUVASTATIN
     Dosage: 10 MG, 1X/DAY
  5. TOCILIZUMAB [Suspect]
     Active Substance: TOCILIZUMAB
     Indication: RHEUMATOID ARTHRITIS
     Dosage: 162 MG, UNK
     Route: 058
     Dates: start: 20130315
  6. ETORICOXIB [Concomitant]
     Active Substance: ETORICOXIB
     Dosage: 60 MG, 1X/DAY
  7. FOLIC ACID. [Concomitant]
     Active Substance: FOLIC ACID
     Dosage: 5 MG ONCE A DAY (EXCEPT ON DAY OF METHOTREXATE)
  8. AMLODIPINE [Concomitant]
     Active Substance: AMLODIPINE BESYLATE
     Dosage: 5 MG ONCE A DAY (IN THE MORNING)
  9. METHOTREXATE SODIUM. [Suspect]
     Active Substance: METHOTREXATE SODIUM
     Indication: RHEUMATOID ARTHRITIS
     Dosage: 10 MG, WEEKLY
     Route: 048
  10. CALCICHEW D3 [Concomitant]
     Active Substance: CALCIUM\CHOLECALCIFEROL
     Dosage: 1 DF, 2X/DAY

REACTIONS (3)
  - Sepsis [Unknown]
  - Pharyngitis [Not Recovered/Not Resolved]
  - Obstructive airways disorder [Not Recovered/Not Resolved]

NARRATIVE: CASE EVENT DATE: 20170426
